FAERS Safety Report 13340843 (Version 1)
Quarter: 2017Q1

REPORT INFORMATION
  Report Type: Spontaneous
  Country: US (occurrence: US)
  Receive Date: 20170316
  Receipt Date: 20170316
  Transmission Date: 20170428
  Serious: No
  Sender: FDA-Public Use
  Company Number: US-ASTRAZENECA-2017SE27799

PATIENT
  Sex: Male
  Weight: 113.4 kg

DRUGS (3)
  1. BYDUREON [Suspect]
     Active Substance: EXENATIDE
     Dosage: ONCE A WEEK
     Route: 065
     Dates: start: 20150313
  2. TRUCILICITY [Concomitant]
  3. BYDUREON [Suspect]
     Active Substance: EXENATIDE
     Dosage: ONCE A WEEK
     Route: 065

REACTIONS (1)
  - Skin reaction [Unknown]
